FAERS Safety Report 9983535 (Version 4)
Quarter: 2014Q2

REPORT INFORMATION
  Report Type: Report from Study
  Country: US (occurrence: US)
  Receive Date: 20140307
  Receipt Date: 20140603
  Transmission Date: 20141212
  Serious: Yes (Other)
  Sender: FDA-Public Use
  Company Number: PHEH2014US004293

PATIENT
  Sex: Male
  Weight: 91 kg

DRUGS (16)
  1. TASIGNA [Suspect]
     Indication: CHRONIC MYELOID LEUKAEMIA
     Dosage: 300 MG, BID
     Route: 048
     Dates: start: 20140131
  2. DAILY MULTIVITAMIN [Concomitant]
     Dosage: 1 DF, QD
  3. ASA [Concomitant]
     Dosage: 81 MG, QD
  4. MIRAPEX [Concomitant]
     Dosage: 0.25 MG, QHS
  5. PRAVASTATIN SODIUM [Concomitant]
     Dosage: 20 MG, QD
  6. SPIRIVA HANDIHALER [Concomitant]
     Dosage: 18 UG, QD
     Route: 055
  7. FLOMAX [Concomitant]
     Dosage: 0.4 MG, QD
  8. DOXYCYCLINE HYCLATE [Concomitant]
     Dosage: 100 MG
  9. CHERATUSSIN AC [Concomitant]
     Dosage: 100 MG
  10. OXYCODONE / ACETAMINOPHEN [Concomitant]
  11. OXYBUTYNIN CHLORIDE [Concomitant]
     Dosage: 5 MG
  12. DITROPAN [Concomitant]
     Dosage: 5 MG
  13. FLUOCINONIDE [Concomitant]
     Dosage: 0.05 %
  14. PRAMIPEXOLE DIHYDROCHLORIDE [Concomitant]
     Dosage: 0.25 MG
  15. FINASTERIDE [Concomitant]
     Dosage: 5 MG
  16. TAMSULOSIN HCL [Concomitant]
     Dosage: 0.4 MG

REACTIONS (9)
  - Orchitis [Unknown]
  - Chronic myeloid leukaemia [Not Recovered/Not Resolved]
  - Malignant neoplasm progression [Not Recovered/Not Resolved]
  - Rhinorrhoea [Recovering/Resolving]
  - Somnolence [Recovering/Resolving]
  - Pruritus [Unknown]
  - Rash generalised [Recovering/Resolving]
  - Fatigue [Recovering/Resolving]
  - Anxiety [Recovering/Resolving]
